FAERS Safety Report 16860700 (Version 1)
Quarter: 2019Q3

REPORT INFORMATION
  Report Type: Spontaneous
  Country: US (occurrence: US)
  Receive Date: 20190927
  Receipt Date: 20190927
  Transmission Date: 20191005
  Serious: No
  Sender: FDA-Public Use
  Company Number: US-KARYOPHARM-2019KPT000429

PATIENT

DRUGS (1)
  1. XPOVIO [Suspect]
     Active Substance: SELINEXOR
     Indication: PRODUCT USED FOR UNKNOWN INDICATION
     Dosage: 40 MG, 2X/WEEK
     Route: 048

REACTIONS (8)
  - Decreased appetite [Unknown]
  - Osteopenia [Unknown]
  - Feeling drunk [Unknown]
  - Thrombocytopenia [Unknown]
  - Anaemia [Unknown]
  - Tooth extraction [Unknown]
  - Fatigue [Unknown]
  - Asthenia [Unknown]
